FAERS Safety Report 8602401-4 (Version None)
Quarter: 2012Q3

REPORT INFORMATION
  Report Type: 
  Country: None (occurrence: None)
  Receive Date: 20120817
  Receipt Date: 19940606
  Transmission Date: 20120928
  Serious: Yes (Other)
  Sender: FDA-Public Use
  Company Number: US-ROCHE-1101611

PATIENT
  Sex: Male

DRUGS (6)
  1. NITROGLYCERIN [Concomitant]
  2. HEPARIN [Concomitant]
  3. EPINEPHRINE [Concomitant]
  4. MORPHINE SULFATE [Concomitant]
  5. ACTIVASE [Suspect]
     Indication: MYOCARDIAL INFARCTION
  6. LIDOCAINE [Concomitant]
     Dosage: 2 MG/MIN

REACTIONS (2)
  - VENTRICULAR TACHYCARDIA [None]
  - CHEST PAIN [None]
